FAERS Safety Report 9917250 (Version 1)
Quarter: 2014Q1

REPORT INFORMATION
  Report Type: Report from Study
  Country: US (occurrence: US)
  Receive Date: 20140221
  Receipt Date: 20140221
  Transmission Date: 20141002
  Serious: Yes (Death)
  Sender: FDA-Public Use
  Company Number: US-TAKEDA-2014TUS001233

PATIENT
  Sex: 0

DRUGS (1)
  1. ULORIC [Suspect]
     Indication: GOUT
     Dosage: 1 TABLET, QD

REACTIONS (1)
  - Death [Fatal]
